FAERS Safety Report 4776953-9 (Version None)
Quarter: 2005Q3

REPORT INFORMATION
  Report Type: 
  Country: None (occurrence: None)
  Receive Date: 20050923
  Receipt Date: 20050913
  Transmission Date: 20060218
  Serious: Yes (Hospitalization)
  Sender: FDA-Public Use
  Company Number: CA-KINGPHARMUSA00001-K200501209

PATIENT
  Age: 31 Year
  Sex: Female

DRUGS (9)
  1. PITRESSIN [Suspect]
     Indication: MYOMECTOMY
     Dosage: 3 U OF .5 U/ML, UNK
     Route: 015
  2. BUPIVACAINE [Concomitant]
     Indication: EPIDURAL ANAESTHESIA
     Dosage: 5 MG, UNK
     Route: 037
  3. SUFENTANIL CITRATE [Concomitant]
     Indication: EPIDURAL ANAESTHESIA
     Dosage: 25 UG, UNK
     Route: 037
  4. MORPHINE [Concomitant]
     Indication: EPIDURAL ANAESTHESIA
     Dosage: .25 MG, UNK
     Route: 037
  5. PROPOFOL [Concomitant]
     Indication: GENERAL ANAESTHESIA
     Dosage: 2 MG/KG, UNK
     Route: 042
  6. PROPOFOL [Concomitant]
     Dosage: 50 MG, UNK
     Route: 042
  7. DESFLURANE [Concomitant]
     Indication: MAINTENANCE OF ANAESTHESIA
     Dosage: .6 MAC, UNK
  8. DESFLURANE [Concomitant]
     Dosage: 2 MAC, UNK
  9. PHENYLEPHRINE (PHENYLEPHRINE) [Concomitant]
     Indication: HYPOTENSION
     Dosage: .1 MG, 5 DOSES
     Route: 042

REACTIONS (11)
  - ATRIAL BIGEMINY [None]
  - ATRIOVENTRICULAR BLOCK [None]
  - BLOOD PRESSURE DECREASED [None]
  - BLOOD PRESSURE IMMEASURABLE [None]
  - BRADYCARDIA [None]
  - EXTRASYSTOLES [None]
  - HAEMORRHAGE [None]
  - HEART RATE DECREASED [None]
  - HYPERTENSION [None]
  - OXYGEN SATURATION IMMEASURABLE [None]
  - PULSE ABSENT [None]
